FAERS Safety Report 17973098 (Version 1)
Quarter: 2020Q3

REPORT INFORMATION
  Report Type: Spontaneous
  Country: US (occurrence: US)
  Receive Date: 20200701
  Receipt Date: 20200701
  Transmission Date: 20201103
  Serious: No
  Sender: FDA-Public Use
  Company Number: None

PATIENT
  Age: 54 Year
  Sex: Female

DRUGS (1)
  1. AMBRISENTAN 5MG TAB [Suspect]
     Active Substance: AMBRISENTAN
     Route: 048
     Dates: start: 20200626, end: 20200629

REACTIONS (6)
  - Palpitations [None]
  - Dyspnoea [None]
  - Peripheral swelling [None]
  - Dizziness [None]
  - Swelling face [None]
  - Erythema [None]

NARRATIVE: CASE EVENT DATE: 20190628
